FAERS Safety Report 9056239 (Version 2)
Quarter: 2013Q1

REPORT INFORMATION
  Report Type: Spontaneous
  Country: DE (occurrence: DE)
  Receive Date: 20130205
  Receipt Date: 20130214
  Transmission Date: 20140127
  Serious: Yes (Other)
  Sender: FDA-Public Use
  Company Number: DE-GILEAD-2013-0068564

PATIENT
  Age: 25 Year
  Sex: Male

DRUGS (8)
  1. VIREAD [Suspect]
     Indication: HIV INFECTION
     Dosage: UNK
     Dates: start: 2007
  2. EMTRICITABINE [Suspect]
     Dosage: UNK
     Dates: start: 2007
  3. AZT [Suspect]
     Indication: HIV INFECTION
  4. 3TC [Suspect]
     Indication: HIV INFECTION
  5. NEVIRAPINE [Concomitant]
     Indication: HIV INFECTION
     Dosage: UNK
     Dates: start: 2007
  6. LOPINAVIR W/RITONAVIR [Concomitant]
     Indication: HIV INFECTION
  7. DARUNAVIR [Concomitant]
     Indication: HIV INFECTION
  8. RITONAVIR [Concomitant]
     Indication: HIV INFECTION

REACTIONS (7)
  - Genotype drug resistance test positive [Unknown]
  - Genotype drug resistance test positive [Unknown]
  - Genotype drug resistance test positive [Unknown]
  - Viral load increased [Unknown]
  - Drug ineffective [Unknown]
  - Lipoatrophy [Not Recovered/Not Resolved]
  - Chronic fatigue syndrome [Unknown]
